FAERS Safety Report 8823694 (Version 3)
Quarter: 2013Q1

REPORT INFORMATION
  Report Type: Report from Study
  Country: FR (occurrence: FR)
  Receive Date: 20121003
  Receipt Date: 20130124
  Transmission Date: 20140127
  Serious: Yes (Other)
  Sender: FDA-Public Use
  Company Number: FR-PFIZER INC-2012238466

PATIENT
  Age: 67 Year
  Sex: Female

DRUGS (17)
  1. IRINOTECAN HCL [Suspect]
     Indication: RECTAL CANCER METASTATIC
     Dosage: UNK
     Route: 042
     Dates: start: 20120412
  2. IRINOTECAN HCL [Suspect]
     Dosage: 280 MG, CYCLIC
     Route: 042
     Dates: start: 20120801, end: 20120829
  3. IRINOTECAN HCL [Suspect]
     Dosage: 280 MG, CYCLICUNK
     Dates: start: 20120814
  4. FLUOROURACILE PFIZER [Suspect]
     Indication: RECTAL CANCER METASTATIC
     Dosage: UNK
     Route: 042
     Dates: start: 20120412
  5. FLUOROURACILE PFIZER [Suspect]
     Dosage: 600 MG, CYCLIC
     Route: 042
     Dates: start: 20120801
  6. FLUOROURACILE PFIZER [Suspect]
     Dosage: 650 MG, CYCLIC
     Dates: start: 20120814
  7. FLUOROURACILE PFIZER [Suspect]
     Dosage: 3750 MG, CYCLIC
     Dates: start: 20120814
  8. FLUOROURACILE PFIZER [Suspect]
     Dosage: 650 MG, CYCLIC
     Route: 042
     Dates: start: 20120822, end: 20120829
  9. FLUOROURACILE PFIZER [Suspect]
     Dosage: 3750 MG, CYCLIC
     Route: 042
     Dates: start: 20120801, end: 20120829
  10. ERBITUX [Suspect]
     Indication: RECTAL CANCER METASTATIC
     Dosage: UNK
     Route: 042
     Dates: start: 20120412
  11. ERBITUX [Suspect]
     Dosage: 390 MG, CYCLIC
     Route: 042
     Dates: start: 20120801
  12. ERBITUX [Suspect]
     Dosage: 390 MG, CYCLIC
     Route: 042
     Dates: start: 20120808
  13. ERBITUX [Suspect]
     Dosage: 390 MG, CYCLIC
     Dates: start: 20120814
  14. ERBITUX [Suspect]
     Dosage: 390 MG, CYCLIC
     Route: 042
     Dates: start: 20120822
  15. ERBITUX [Suspect]
     Dosage: 315 MG, CYCLIC
     Route: 042
     Dates: start: 20120905
  16. FOLINIC ACID [Suspect]
     Indication: RECTAL CANCER METASTATIC
     Dosage: UNK
     Dates: start: 20120412
  17. TOLEXINE [Concomitant]
     Indication: DERMATITIS ACNEIFORM
     Dosage: UNK
     Dates: end: 201207

REACTIONS (1)
  - Photosensitivity reaction [Recovering/Resolving]
